FAERS Safety Report 25483902 (Version 1)
Quarter: 2025Q2

REPORT INFORMATION
  Report Type: Spontaneous
  Country: IT (occurrence: IT)
  Receive Date: 20250626
  Receipt Date: 20250626
  Transmission Date: 20250716
  Serious: Yes (Other)
  Sender: PFIZER
  Company Number: IT-TEVA-2022-IT-2001074

PATIENT
  Age: 55 Year
  Sex: Female

DRUGS (5)
  1. GEMCITABINE HYDROCHLORIDE [Suspect]
     Active Substance: GEMCITABINE HYDROCHLORIDE
     Indication: Peripheral T-cell lymphoma unspecified stage III
     Dates: start: 202001, end: 202002
  2. BUSULFAN [Suspect]
     Active Substance: BUSULFAN
     Indication: Bone marrow conditioning regimen
     Dates: start: 2020, end: 2020
  3. FLUDARABINE [Suspect]
     Active Substance: FLUDARABINE PHOSPHATE
     Indication: Bone marrow conditioning regimen
     Dates: start: 2020, end: 2020
  4. DUVELISIB [Suspect]
     Active Substance: DUVELISIB
     Indication: Peripheral T-cell lymphoma unspecified stage III
     Dosage: 150 MILLIGRAM DAILY; RECEIVED TWO 28-DAY CYCLES
     Dates: start: 202003
  5. THIOTEPA [Suspect]
     Active Substance: THIOTEPA
     Indication: Bone marrow conditioning regimen
     Dates: start: 2020, end: 2020

REACTIONS (6)
  - Malignant neoplasm progression [Unknown]
  - Peripheral T-cell lymphoma unspecified recurrent [Unknown]
  - Arthralgia [Unknown]
  - Rash [Unknown]
  - Paraesthesia [Unknown]
  - Mucosal inflammation [Unknown]

NARRATIVE: CASE EVENT DATE: 20200101
